FAERS Safety Report 7394172-7 (Version None)
Quarter: 2011Q2

REPORT INFORMATION
  Report Type: 
  Country: None (occurrence: None)
  Receive Date: 20110405
  Receipt Date: 20110323
  Transmission Date: 20111010
  Serious: Yes (Other)
  Sender: FDA-Public Use
  Company Number: US-ELI_LILLY_AND_COMPANY-US201103007544

PATIENT
  Sex: Female

DRUGS (3)
  1. HUMULIN R [Suspect]
     Indication: DIABETES MELLITUS
     Dosage: 10 U, BID
  2. HUMALOG [Suspect]
  3. HUMULIN N [Suspect]
     Indication: DIABETES MELLITUS
     Dosage: 15 U, BID

REACTIONS (3)
  - OCULAR VASCULAR DISORDER [None]
  - DRUG DISPENSING ERROR [None]
  - VISUAL ACUITY REDUCED [None]
